FAERS Safety Report 14301469 (Version 1)
Quarter: 2017Q4

REPORT INFORMATION
  Report Type: Spontaneous
  Country: IS (occurrence: IS)
  Receive Date: 20171219
  Receipt Date: 20171219
  Transmission Date: 20180321
  Serious: Yes (Other)
  Sender: FDA-Public Use
  Company Number: IS-GLAXOSMITHKLINE-IS2017GSK187915

PATIENT
  Sex: Female

DRUGS (2)
  1. NICOTINELL [Suspect]
     Active Substance: NICOTINE
     Indication: SMOKING CESSATION THERAPY
     Dosage: UNK
     Dates: start: 2004, end: 2014
  2. NICOTINELL [Suspect]
     Active Substance: NICOTINE
     Indication: EX-TOBACCO USER

REACTIONS (6)
  - Abdominal discomfort [Recovered/Resolved with Sequelae]
  - Food intolerance [Unknown]
  - Vomiting [Unknown]
  - Malaise [Unknown]
  - Intentional product use issue [Recovered/Resolved]
  - Nicotine dependence [Recovered/Resolved]

NARRATIVE: CASE EVENT DATE: 2004
